FAERS Safety Report 22246968 (Version 1)
Quarter: 2023Q2

REPORT INFORMATION
  Report Type: Spontaneous
  Country: FR (occurrence: FR)
  Receive Date: 20230424
  Receipt Date: 20230424
  Transmission Date: 20230722
  Serious: Yes (Hospitalization)
  Sender: FDA-Public Use
  Company Number: None

PATIENT
  Age: 17 Year
  Sex: Female
  Weight: 56 kg

DRUGS (3)
  1. PIROXICAM [Suspect]
     Active Substance: PIROXICAM
     Indication: Mesotherapy
     Route: 065
     Dates: start: 20230217, end: 20230224
  2. LIDOCAINE HYDROCHLORIDE [Suspect]
     Active Substance: LIDOCAINE HYDROCHLORIDE
     Indication: Mesotherapy
     Route: 065
     Dates: start: 20230217, end: 20230224
  3. ETHAMSYLATE [Suspect]
     Active Substance: ETHAMSYLATE
     Indication: Mesotherapy
     Dosage: STRENGTH : 250 MG/2 ML
     Route: 065
     Dates: start: 20230217, end: 20230224

REACTIONS (3)
  - Pain in extremity [Recovering/Resolving]
  - Pain in extremity [Recovering/Resolving]
  - Spinal pain [Recovering/Resolving]

NARRATIVE: CASE EVENT DATE: 20230226
